FAERS Safety Report 8380817-1 (Version None)
Quarter: 2012Q2

REPORT INFORMATION
  Report Type: 
  Country: None (occurrence: None)
  Receive Date: 20120430
  Receipt Date: 20120420
  Transmission Date: 20120825
  Serious: Yes (Other)
  Sender: FDA-Public Use
  Company Number: 2011027387

PATIENT
  Age: 46 Year
  Sex: Female
  Weight: 49.8957 kg

DRUGS (20)
  1. ZOFRAN [Concomitant]
  2. HIZENTRA [Suspect]
     Indication: IMMUNODEFICIENCY COMMON VARIABLE
     Dosage: SEE IMAGE
     Route: 058
     Dates: start: 20100429
  3. HIZENTRA [Suspect]
     Indication: IMMUNODEFICIENCY COMMON VARIABLE
     Dosage: SEE IMAGE
     Route: 058
     Dates: start: 20100601
  4. HIZENTRA [Suspect]
     Indication: IMMUNODEFICIENCY COMMON VARIABLE
     Dosage: SEE IMAGE
     Route: 058
     Dates: start: 20120127, end: 20120127
  5. HIZENTRA [Suspect]
  6. HIZENTRA [Suspect]
  7. AMBIEN [Concomitant]
  8. EPIPEN [Concomitant]
  9. HIZENTRA [Suspect]
  10. HIZENTRA [Suspect]
  11. HIZENTRA [Suspect]
  12. VALTREX [Concomitant]
  13. DIPHENHYDRAMINE HCL [Concomitant]
  14. LMX (LIDOCAINE) [Concomitant]
  15. ULTRAM [Concomitant]
  16. ACETAMINOPHEN [Concomitant]
  17. CREON [Concomitant]
  18. HIZENTRA [Suspect]
  19. HYDROCODONE BITARTRATE + ACETAMINOPHEN [Concomitant]
  20. VIVELLE-DOT [Concomitant]

REACTIONS (18)
  - INFUSION SITE INFLAMMATION [None]
  - INFUSION SITE MASS [None]
  - BACK PAIN [None]
  - EYE SWELLING [None]
  - LYMPHADENOPATHY [None]
  - HEADACHE [None]
  - PAIN IN EXTREMITY [None]
  - GINGIVAL BLEEDING [None]
  - PRURITUS [None]
  - INFUSION SITE IRRITATION [None]
  - INFUSION SITE HAEMATOMA [None]
  - ARTHRALGIA [None]
  - BLISTER [None]
  - HERPES ZOSTER [None]
  - MUSCULOSKELETAL STIFFNESS [None]
  - LYMPHOMA [None]
  - INFUSION SITE REACTION [None]
  - SPLINTER HAEMORRHAGES [None]
